FAERS Safety Report 4584829-5 (Version None)
Quarter: 2005Q1

REPORT INFORMATION
  Report Type: 
  Country: None (occurrence: None)
  Receive Date: 20050214
  Receipt Date: 20050128
  Transmission Date: 20050727
  Serious: No
  Sender: FDA-Public Use
  Company Number: S05-USA-00537-01

PATIENT
  Age: 79 Year
  Sex: Female

DRUGS (12)
  1. LEXAPRO [Suspect]
     Indication: DEPRESSION
     Dosage: 20 MG QD PO
     Route: 048
     Dates: start: 20030601, end: 20050113
  2. LEXAPRO [Suspect]
     Indication: DEPRESSION
     Dosage: 10 MG QD PO
     Route: 048
     Dates: start: 20050114
  3. IMURAN [Concomitant]
  4. LOPRESSOR [Concomitant]
  5. PREDNISONE [Concomitant]
  6. PLAVIX [Concomitant]
  7. LASIX [Concomitant]
  8. POTASSIUM CHLORIDE [Concomitant]
  9. ASPIRIN [Concomitant]
  10. TYLENOL [Concomitant]
  11. CITRACAL (CALCIUM CITRATE) [Concomitant]
  12. MULTIVITAMIN [Concomitant]

REACTIONS (4)
  - DIARRHOEA [None]
  - INTERVERTEBRAL DISC PROTRUSION [None]
  - RENAL ARTERY STENOSIS [None]
  - SPINAL FRACTURE [None]
